FAERS Safety Report 14492406 (Version 4)
Quarter: 2018Q4

REPORT INFORMATION
  Report Type: Spontaneous
  Country: JP (occurrence: JP)
  Receive Date: 20180206
  Receipt Date: 20181001
  Transmission Date: 20190204
  Serious: Yes (Hospitalization, Other)
  Sender: FDA-Public Use
  Company Number: JP-PFIZER INC-2017551380

PATIENT
  Age: 61 Year
  Sex: Female

DRUGS (2)
  1. FASLODEX [Concomitant]
     Active Substance: FULVESTRANT
     Indication: BREAST CANCER
     Dosage: 500 MG, 1X/DAY
     Route: 030
     Dates: start: 20171220
  2. IBRANCE [Suspect]
     Active Substance: PALBOCICLIB
     Indication: BREAST CANCER
     Dosage: 125 MG, 1X/DAY
     Route: 048
     Dates: start: 20171220, end: 20180106

REACTIONS (9)
  - Interstitial lung disease [Recovered/Resolved]
  - Arthralgia [Recovered/Resolved]
  - Monocyte count decreased [Unknown]
  - Rash [Recovered/Resolved]
  - Anaemia [Recovering/Resolving]
  - Febrile neutropenia [Recovered/Resolved]
  - Headache [Recovered/Resolved]
  - Myalgia [Recovered/Resolved]
  - Platelet count decreased [Recovered/Resolved]

NARRATIVE: CASE EVENT DATE: 201712
